FAERS Safety Report 5400081-2 (Version None)
Quarter: 2007Q3

REPORT INFORMATION
  Report Type: 
  Country: None (occurrence: None)
  Receive Date: 20070725
  Receipt Date: 20070712
  Transmission Date: 20080115
  Serious: Yes (Hospitalization)
  Sender: FDA-Public Use
  Company Number: TCI2007A03460

PATIENT
  Age: 70 Year
  Sex: Female

DRUGS (5)
  1. BASEN OD TABLETS 0.3 (VOGLIBOSE) [Suspect]
     Indication: DIABETES MELLITUS
     Dosage: 0.9 MG (0.9 MG, 1 D)
     Route: 048
     Dates: start: 20070620, end: 20070622
  2. ACTOS [Suspect]
     Indication: DIABETES MELLITUS
     Dosage: 15 MG (15 MG, 1 D)
     Route: 048
     Dates: start: 20070630, end: 20070702
  3. DEPAS (ETIZOLAM) [Concomitant]
  4. LIPITOR [Concomitant]
  5. SENNOSIDE (SENNOSIDE A+B CALCIUM) [Concomitant]

REACTIONS (2)
  - FACE OEDEMA [None]
  - HYPOKALAEMIA [None]
